FAERS Safety Report 18499043 (Version 1)
Quarter: 2020Q4

REPORT INFORMATION
  Report Type: Report from Study
  Country: KR (occurrence: KR)
  Receive Date: 20201112
  Receipt Date: 20201112
  Transmission Date: 20210114
  Serious: Yes (Death, Hospitalization)
  Sender: FDA-Public Use
  Company Number: KR-TAKEDA-2020TUS049726

PATIENT
  Age: 49 Year
  Sex: Male
  Weight: 65 kg

DRUGS (15)
  1. LATODINE [Concomitant]
     Indication: GASTRITIS
     Dosage: UNK, BID
     Route: 048
     Dates: start: 20200608, end: 20200804
  2. GLUTATHION [Concomitant]
     Indication: PROPHYLAXIS
     Dosage: UNK UNK, BID
     Route: 048
     Dates: start: 20200618, end: 20200804
  3. MEDILAC DS [Concomitant]
     Indication: PROPHYLAXIS AGAINST DIARRHOEA
     Dosage: UNK UNK, TID
     Route: 048
     Dates: start: 20200618, end: 20200804
  4. SURFOLASE [Concomitant]
     Indication: PROPHYLAXIS
     Dosage: UNK UNK, BID
     Route: 048
     Dates: start: 20200608, end: 20200804
  5. LIXIANA [Concomitant]
     Active Substance: EDOXABAN TOSYLATE
     Indication: DEEP VEIN THROMBOSIS
     Dosage: 60 MILLIGRAM, QD
     Route: 048
     Dates: start: 20200707, end: 20200804
  6. NEXIUM I.V. [Concomitant]
     Active Substance: ESOMEPRAZOLE SODIUM
     Indication: GASTRITIS
     Dosage: 20 MILLIGRAM, QD
     Route: 048
     Dates: start: 20200608, end: 20200804
  7. FLOMOX [CEFCAPENE PIVOXIL HYDROCHLORIDE] [Concomitant]
     Active Substance: CEFCAPENE PIVOXIL HYDROCHLORIDE
     Indication: PROPHYLAXIS
     Dosage: 100 MILLIGRAM, TID
     Route: 048
     Dates: start: 20200610, end: 20200804
  8. LEVOTUSS [Concomitant]
     Active Substance: LEVODROPROPIZINE
     Indication: PROPHYLAXIS
     Dosage: UNK UNK, TID
     Route: 048
     Dates: start: 20200608, end: 20200804
  9. CNOXANE [Concomitant]
     Indication: DEEP VEIN THROMBOSIS
     Dosage: 60 MILLIGRAM, TID
     Route: 058
     Dates: start: 20200702, end: 20200706
  10. BRIGATINIB [Suspect]
     Active Substance: BRIGATINIB
     Indication: NON-SMALL CELL LUNG CANCER
     Dosage: 90 MILLIGRAM, QD
     Route: 048
     Dates: start: 20200618, end: 20200624
  11. BRIGATINIB [Suspect]
     Active Substance: BRIGATINIB
     Dosage: 180 MILLIGRAM, QD
     Route: 048
     Dates: start: 20200625, end: 20200804
  12. GODEX [ADENINE HYDROCHLORIDE;BIFENDATE;CARNITINE OROTATE;CYANOCOBALAMI [Concomitant]
     Indication: PROPHYLAXIS
     Dosage: UNK UNK, BID
     Route: 048
     Dates: start: 20200618, end: 20200804
  13. URSA [Concomitant]
     Active Substance: URSODIOL
     Indication: PROPHYLAXIS
     Dosage: 200 MILLIGRAM, TID
     Route: 048
     Dates: start: 20200618, end: 20200804
  14. CODAEWON FORTE [Concomitant]
     Indication: PROPHYLAXIS
     Dosage: 20 MILLILITER, TID
     Route: 048
     Dates: start: 20200608, end: 20200804
  15. ALLELOCK [Concomitant]
     Active Substance: OLOPATADINE HYDROCHLORIDE
     Indication: PROPHYLAXIS
     Dosage: 5 MILLIGRAM, BID
     Route: 048
     Dates: start: 20200618, end: 20200804

REACTIONS (1)
  - Pneumonia [Fatal]

NARRATIVE: CASE EVENT DATE: 20200804
